FAERS Safety Report 7526066-8 (Version None)
Quarter: 2011Q2

REPORT INFORMATION
  Report Type: 
  Country: None (occurrence: None)
  Receive Date: 20110603
  Receipt Date: 20110603
  Transmission Date: 20111010
  Serious: Yes (Hospitalization)
  Sender: FDA-Public Use
  Company Number: None

PATIENT
  Age: 67 Year
  Sex: Male
  Weight: 95.5 kg

DRUGS (2)
  1. LISINOPRIL [Suspect]
     Indication: HYPERTENSION
     Dosage: 20 MG EVERY DAY PO
     Route: 048
     Dates: start: 20040206, end: 20110601
  2. ONDANSETRON [Suspect]
     Indication: NAUSEA
     Dosage: 4 MG ONCE IV
     Route: 042
     Dates: start: 20110601, end: 20110601

REACTIONS (1)
  - ANGIOEDEMA [None]
